FAERS Safety Report 6533966-4 (Version None)
Quarter: 2010Q1

REPORT INFORMATION
  Report Type: 
  Country: None (occurrence: None)
  Receive Date: 20100112
  Receipt Date: 20100104
  Transmission Date: 20100710
  Serious: Yes (Disabling, Other)
  Sender: FDA-Public Use
  Company Number: US-CELGENEUS-163-21880-09062039

PATIENT
  Sex: Female

DRUGS (7)
  1. REVLIMID [Suspect]
     Indication: MULTIPLE MYELOMA
     Route: 048
     Dates: start: 20090601, end: 20090601
  2. REVLIMID [Suspect]
     Route: 048
     Dates: start: 20080501
  3. REVLIMID [Suspect]
     Route: 048
     Dates: start: 20090801
  4. DEXAMETHASONE [Concomitant]
     Indication: DRUG USE FOR UNKNOWN INDICATION
     Route: 065
     Dates: start: 20090601
  5. VELCADE [Concomitant]
     Indication: DRUG USE FOR UNKNOWN INDICATION
     Route: 065
     Dates: start: 20090601
  6. ASPIRIN [Concomitant]
     Indication: THROMBOSIS PROPHYLAXIS
     Route: 065
  7. PROTON PUMP INHIBITOR [Concomitant]
     Route: 065

REACTIONS (4)
  - HYPOACUSIS [None]
  - HYPOAESTHESIA [None]
  - OTITIS MEDIA [None]
  - PARAESTHESIA [None]
